FAERS Safety Report 8932544 (Version 1)
Quarter: 2012Q4

REPORT INFORMATION
  Report Type: Spontaneous
  Country: US (occurrence: None)
  Receive Date: 20121126
  Receipt Date: 20121126
  Transmission Date: 20130627
  Serious: No
  Sender: FDA-Public Use
  Company Number: None

PATIENT
  Sex: Male

DRUGS (1)
  1. STIVARGA ABOTT [Suspect]
     Indication: COLORECTAL CANCER
     Dosage: 120 mg QD PO
     Route: 048
     Dates: start: 20120101

REACTIONS (1)
  - Fatigue [None]
